FAERS Safety Report 5924506-9 (Version None)
Quarter: 2008Q4

REPORT INFORMATION
  Report Type: 
  Country: None (occurrence: None)
  Receive Date: 20081020
  Receipt Date: 20081010
  Transmission Date: 20090506
  Serious: Yes (Hospitalization, Other)
  Sender: FDA-Public Use
  Company Number: US-AMGEN-QUU312861

PATIENT
  Sex: Male

DRUGS (1)
  1. ENBREL [Suspect]
     Indication: RHEUMATOID ARTHRITIS
     Dates: start: 19990601

REACTIONS (6)
  - ARTHRALGIA [None]
  - HYPOAESTHESIA [None]
  - JOINT STIFFNESS [None]
  - PNEUMONIA [None]
  - RHEUMATOID ARTHRITIS [None]
  - SPINAL CORD COMPRESSION [None]
